FAERS Safety Report 9943162 (Version 2)
Quarter: 2014Q2

REPORT INFORMATION
  Report Type: Spontaneous
  Country: US (occurrence: US)
  Receive Date: 20140303
  Receipt Date: 20140508
  Transmission Date: 20141212
  Serious: Yes (Hospitalization)
  Sender: FDA-Public Use
  Company Number: US-GLAXOSMITHKLINE-A1062969A

PATIENT
  Age: 50 Year
  Sex: Male

DRUGS (2)
  1. ADVAIR HFA [Suspect]
     Indication: RESPIRATORY DISORDER
     Route: 055
     Dates: start: 20130323
  2. VENTOLIN [Suspect]
     Indication: RESPIRATORY DISORDER
     Route: 055
     Dates: start: 20130323

REACTIONS (2)
  - Investigation [Unknown]
  - Pneumonia [Recovering/Resolving]
